FAERS Safety Report 7419131-7 (Version None)
Quarter: 2011Q2

REPORT INFORMATION
  Report Type: 
  Country: None (occurrence: None)
  Receive Date: 20110415
  Receipt Date: 20110321
  Transmission Date: 20111010
  Serious: No
  Sender: FDA-Public Use
  Company Number: US-B.I. PHARMACEUTICALS,INC./RIDGEFIELD-2010-BP-14954BP

PATIENT
  Age: 74 Year
  Sex: Female

DRUGS (21)
  1. SPIRIVA [Concomitant]
     Dosage: 18 MCG
  2. PRADAXA [Suspect]
     Indication: DRUG THERAPY CHANGED
  3. CALCIUM W/D [Concomitant]
  4. BENZONATATE [Concomitant]
     Dosage: 100 MG
     Dates: start: 20101201, end: 20101206
  5. PRADAXA [Suspect]
     Indication: CEREBROVASCULAR ACCIDENT PROPHYLAXIS
  6. CARDIZEM [Concomitant]
     Dosage: 180 MG
     Route: 048
  7. METFORMIN HCL [Concomitant]
     Dosage: 1700 MG
  8. SINGULAIR [Concomitant]
     Dosage: 10 MG
  9. MICARDIS [Concomitant]
     Dosage: 20 MG
  10. LEVOXYL [Concomitant]
     Dosage: 88 MG
  11. POTASSIUM [Concomitant]
     Dosage: 40 MG
  12. LIPITOR [Concomitant]
     Dosage: 10 MG
  13. PRADAXA [Suspect]
     Indication: ATRIAL FIBRILLATION
     Dosage: 300 MG
     Route: 048
     Dates: start: 20101130
  14. METOPROLOL TARTRATE [Concomitant]
     Dosage: 25 MG
  15. ADVAIR HFA [Concomitant]
  16. PREVACID [Concomitant]
     Dosage: 30 MG
  17. ACTOS [Concomitant]
     Dosage: 30 MG
     Route: 048
  18. SERTRALINE [Concomitant]
     Dosage: 50 MG
  19. XOPENEX [Concomitant]
  20. LEVAQUIN [Suspect]
     Dosage: 500 MG
     Dates: start: 20101206, end: 20101213
  21. FUROSEMIDE [Concomitant]
     Dosage: 40 MG

REACTIONS (4)
  - LOWER RESPIRATORY TRACT INFECTION [None]
  - INSOMNIA [None]
  - UPPER RESPIRATORY TRACT INFECTION [None]
  - DYSPHONIA [None]
